FAERS Safety Report 5852988-X (Version None)
Quarter: 2008Q3

REPORT INFORMATION
  Report Type: 
  Country: None (occurrence: None)
  Receive Date: 20080821
  Receipt Date: 20080812
  Transmission Date: 20090109
  Serious: Yes (Death)
  Sender: FDA-Public Use
  Company Number: GB-ROCHE-478479

PATIENT
  Age: 40 Year
  Sex: Female

DRUGS (1)
  1. XELODA [Suspect]
     Route: 065
     Dates: start: 20070101

REACTIONS (3)
  - DISSEMINATED INTRAVASCULAR COAGULATION [None]
  - NEUTROPENIA [None]
  - PANCYTOPENIA [None]
